FAERS Safety Report 13084460 (Version 1)
Quarter: 2017Q1

REPORT INFORMATION
  Report Type: Spontaneous
  Country: US (occurrence: US)
  Receive Date: 20170104
  Receipt Date: 20170104
  Transmission Date: 20170428
  Serious: No
  Sender: FDA-Public Use
  Company Number: US-009507513-1612USA004641

PATIENT
  Age: 28 Year
  Sex: Female

DRUGS (1)
  1. PREGNYL [Suspect]
     Active Substance: CHORIOGONADOTROPIN ALFA
     Indication: INFERTILITY
     Dosage: UNK, STRENGTH 10000 UNITS (U) MULTIPLE DOSE VIAL (MDV)/FREQUENCY ^AS DIRECTED^
     Route: 058
     Dates: start: 20160719

REACTIONS (3)
  - Breast tenderness [Unknown]
  - Drug hypersensitivity [Unknown]
  - Vulvovaginal pruritus [Recovering/Resolving]

NARRATIVE: CASE EVENT DATE: 2016
